FAERS Safety Report 14098470 (Version 1)
Quarter: 2017Q4

REPORT INFORMATION
  Report Type: Spontaneous
  Country: US (occurrence: None)
  Receive Date: 20171017
  Receipt Date: 20171017
  Transmission Date: 20180321
  Serious: No
  Sender: FDA-Public Use
  Company Number: None

PATIENT
  Age: 57 Year
  Sex: Female

DRUGS (1)
  1. H.P. ACTHAR [Suspect]
     Active Substance: CORTICOTROPIN
     Indication: SARCOIDOSIS
     Dosage: 80 UNITS
     Route: 058
     Dates: start: 20170920

REACTIONS (3)
  - Nausea [None]
  - Hyperhidrosis [None]
  - Blood glucose increased [None]

NARRATIVE: CASE EVENT DATE: 20171014
